FAERS Safety Report 5410932-3 (Version None)
Quarter: 2007Q3

REPORT INFORMATION
  Report Type: 
  Country: None (occurrence: None)
  Receive Date: 20070810
  Receipt Date: 20070731
  Transmission Date: 20080115
  Serious: Yes (Other)
  Sender: FDA-Public Use
  Company Number: HQWYE350502AUG07

PATIENT
  Sex: Female

DRUGS (1)
  1. EFFEXOR XR [Suspect]
     Dosage: 112.5 MG FREQUENCY UNSPECIFIED
     Route: 048

REACTIONS (1)
  - INTRACRANIAL ANEURYSM [None]
